FAERS Safety Report 5292704-6 (Version None)
Quarter: 2007Q2

REPORT INFORMATION
  Report Type: 
  Country: None (occurrence: None)
  Receive Date: 20070404
  Receipt Date: 20070325
  Transmission Date: 20071010
  Serious: Yes (Other)
  Sender: FDA-Public Use
  Company Number: 07H-163-0312339-00

PATIENT
  Age: 69 Year
  Sex: Female

DRUGS (1)
  1. VANCOMYCIN HCL [Suspect]
     Indication: STAPHYLOCOCCAL OSTEOMYELITIS

REACTIONS (4)
  - ANTI-PLATELET ANTIBODY POSITIVE [None]
  - HAEMORRHAGE [None]
  - IMMUNE SYSTEM DISORDER [None]
  - THROMBOCYTOPENIA [None]
